FAERS Safety Report 23597990 (Version 3)
Quarter: 2024Q3

REPORT INFORMATION
  Report Type: Spontaneous
  Country: US (occurrence: US)
  Receive Date: 20240305
  Receipt Date: 20240723
  Transmission Date: 20241017
  Serious: Yes (Other)
  Sender: SANOFI AVENTIS
  Company Number: US-SA-SAC20240228001534

PATIENT
  Age: 18 Year
  Sex: Male

DRUGS (7)
  1. ALTUVIIIO [Suspect]
     Active Substance: EFANESOCTOCOG ALFA
     Indication: Factor VIII deficiency
     Dosage: 4000 IU (+/- 10%) (3000 UNIT (3064 UNITS/VIAL, 4 VIALS. INFUSE ONE 3064 UNIT VIAL ALONG WITH ONE 951
     Route: 042
     Dates: start: 20240208
  2. ALTUVIIIO [Suspect]
     Active Substance: EFANESOCTOCOG ALFA
     Dosage: 1000 IU
     Route: 042
     Dates: start: 20240208
  3. ALTUVIIIO [Suspect]
     Active Substance: EFANESOCTOCOG ALFA
     Dosage: 3910 U (INFUSE TWO 1955 UNIT VIALS OR 4000 U (+/-5%) (TARGET DOSE), QW
     Route: 042
     Dates: start: 20240315
  4. ALTUVIIIO [Suspect]
     Active Substance: EFANESOCTOCOG ALFA
     Dosage: 3910 U (INFUSE TWO 1955 UNIT VIALS OR 4000 U (+/-5%) (TARGET DOSE), PRN (AS NEEDED FOR BLEED, INJURY
     Route: 042
     Dates: start: 20240315
  5. HEMLIBRA [Concomitant]
     Active Substance: EMICIZUMAB-KXWH
     Dosage: UNK
  6. KOGENATE FS [Concomitant]
     Active Substance: ANTIHEMOPHILIC FACTOR, HUMAN RECOMBINANT
     Dosage: UNK
  7. KOVALTRY [Concomitant]
     Active Substance: ANTIHEMOPHILIC FACTOR, HUMAN RECOMBINANT

REACTIONS (5)
  - Labral reconstruction [Recovering/Resolving]
  - Joint dislocation [Not Recovered/Not Resolved]
  - Fall [Not Recovered/Not Resolved]
  - Injury [Not Recovered/Not Resolved]
  - Surgery [Recovering/Resolving]

NARRATIVE: CASE EVENT DATE: 20240101
